FAERS Safety Report 21667084 (Version 1)
Quarter: 2022Q4

REPORT INFORMATION
  Report Type: Report from Study
  Country: BR (occurrence: BR)
  Receive Date: 20221201
  Receipt Date: 20221201
  Transmission Date: 20230113
  Serious: Yes (Hospitalization)
  Sender: FDA-Public Use
  Company Number: BR-CELLTRION INC.-2022BR020252

PATIENT

DRUGS (3)
  1. INFLIXIMAB [Suspect]
     Active Substance: INFLIXIMAB
     Indication: Colitis ulcerative
     Dosage: 3 AMPOULES EVERY 2 MONTHS
     Route: 042
     Dates: start: 20220917
  2. URSODIOL [Concomitant]
     Active Substance: URSODIOL
     Indication: Colitis
     Dosage: 1 PILL A DAY
     Route: 048
     Dates: start: 2019
  3. PREDNISOLONE [Concomitant]
     Active Substance: PREDNISOLONE
     Indication: Jaundice
     Dosage: 1 PILL A DAY
     Route: 048
     Dates: start: 20221103

REACTIONS (3)
  - Jaundice [Recovered/Resolved]
  - Malaise [Unknown]
  - Intentional dose omission [Unknown]

NARRATIVE: CASE EVENT DATE: 20221102
